FAERS Safety Report 5208969-2 (Version None)
Quarter: 2007Q1

REPORT INFORMATION
  Report Type: 
  Country: None (occurrence: None)
  Receive Date: 20070116
  Receipt Date: 20070115
  Transmission Date: 20070707
  Serious: Yes (Congenital Anomaly)
  Sender: FDA-Public Use
  Company Number: US-GLAXOSMITHKLINE-A0591324A

PATIENT
  Age: 33 Year
  Sex: Female

DRUGS (2)
  1. COMBIVIR [Suspect]
     Indication: HIV INFECTION
     Dosage: 2TAB PER DAY
     Route: 048
     Dates: start: 20051128
  2. VIRACEPT [Concomitant]
     Indication: HIV INFECTION
     Dosage: 2.5G PER DAY
     Route: 048
     Dates: start: 20051128

REACTIONS (2)
  - DRUG EXPOSURE DURING PREGNANCY [None]
  - LABORATORY TEST ABNORMAL [None]
